FAERS Safety Report 21041919 (Version 12)
Quarter: 2023Q2

REPORT INFORMATION
  Report Type: Spontaneous
  Country: CA (occurrence: CA)
  Receive Date: 20220705
  Receipt Date: 20230612
  Transmission Date: 20230722
  Serious: Yes (Hospitalization, Other)
  Sender: FDA-Public Use
  Company Number: CA-CELLTRION INC.-2022CA008958

PATIENT

DRUGS (8)
  1. INFLECTRA [Suspect]
     Active Substance: INFLIXIMAB-DYYB
     Indication: Crohn^s disease
     Dosage: 500 MG, 0, 2, 6 WEEKS, THEN EVERY 8 WEEKS
     Route: 042
     Dates: start: 20171019
  2. INFLECTRA [Suspect]
     Active Substance: INFLIXIMAB-DYYB
     Dosage: 500 MG, 0, 2, 6 WEEKS, THEN EVERY 8 WEEKS
     Route: 042
     Dates: start: 20220704
  3. INFLECTRA [Suspect]
     Active Substance: INFLIXIMAB-DYYB
     Dosage: UNK
     Route: 042
     Dates: start: 20221230
  4. INFLECTRA [Suspect]
     Active Substance: INFLIXIMAB-DYYB
     Dosage: 500 MG, 0, 2, 6 WEEKS, THEN EVERY 8 WEEKS
     Route: 042
     Dates: start: 20230427
  5. ARIPIPRAZOLE [Concomitant]
     Active Substance: ARIPIPRAZOLE
     Dosage: 10 MG, 1X/DAY
     Route: 048
     Dates: start: 2016
  6. PARNATE [Concomitant]
     Active Substance: TRANYLCYPROMINE SULFATE
     Dosage: 60 MG, 1X/DAY
     Route: 048
     Dates: start: 2012
  7. VYVANSE [Concomitant]
     Active Substance: LISDEXAMFETAMINE DIMESYLATE
     Dosage: 10 MG, 1X/DAY
     Route: 048
     Dates: start: 2016
  8. IMODIUM [Concomitant]
     Active Substance: LOPERAMIDE HYDROCHLORIDE
     Dosage: UNK

REACTIONS (31)
  - Gastroenteritis norovirus [Recovering/Resolving]
  - Frequent bowel movements [Recovering/Resolving]
  - Small intestinal obstruction [Not Recovered/Not Resolved]
  - Renal disorder [Unknown]
  - Acute kidney injury [Unknown]
  - Dehydration [Unknown]
  - Haematochezia [Unknown]
  - Coeliac disease [Unknown]
  - Gastrointestinal infection [Unknown]
  - Anal fissure haemorrhage [Not Recovered/Not Resolved]
  - Condition aggravated [Unknown]
  - Drug level above therapeutic [Unknown]
  - Therapeutic product effect incomplete [Unknown]
  - Impaired quality of life [Unknown]
  - Infusion site pain [Unknown]
  - Pouchitis [Not Recovered/Not Resolved]
  - Fistula discharge [Unknown]
  - Anal fissure [Not Recovered/Not Resolved]
  - Fatigue [Unknown]
  - Brain fog [Unknown]
  - Asthenia [Unknown]
  - Fall [Recovered/Resolved]
  - Dysbiosis [Not Recovered/Not Resolved]
  - Arthralgia [Unknown]
  - Abdominal discomfort [Not Recovered/Not Resolved]
  - Red blood cell count abnormal [Not Recovered/Not Resolved]
  - Haemoglobin abnormal [Not Recovered/Not Resolved]
  - Haematocrit abnormal [Not Recovered/Not Resolved]
  - Monocyte count abnormal [Not Recovered/Not Resolved]
  - Blood creatinine abnormal [Not Recovered/Not Resolved]
  - Glomerular filtration rate abnormal [Not Recovered/Not Resolved]

NARRATIVE: CASE EVENT DATE: 20201002
